FAERS Safety Report 13993062 (Version 2)
Quarter: 2017Q3

REPORT INFORMATION
  Report Type: Spontaneous
  Country: US (occurrence: US)
  Receive Date: 20170920
  Receipt Date: 20170925
  Transmission Date: 20171128
  Serious: No
  Sender: FDA-Public Use
  Company Number: US-PFIZER INC-2017406838

PATIENT
  Age: 78 Year
  Sex: Female
  Weight: 90 kg

DRUGS (1)
  1. GABAPENTIN. [Suspect]
     Active Substance: GABAPENTIN
     Indication: DIABETIC NEUROPATHY
     Dosage: 100 MG, 2X/DAY, ONE IN THE MORNING AND NIGHT
     Route: 048

REACTIONS (3)
  - Paraesthesia [Unknown]
  - Drug ineffective for unapproved indication [Unknown]
  - Insomnia [Unknown]
